FAERS Safety Report 21894439 (Version 1)
Quarter: 2023Q1

REPORT INFORMATION
  Report Type: Spontaneous
  Country: CZ (occurrence: CZ)
  Receive Date: 20230121
  Receipt Date: 20230121
  Transmission Date: 20230417
  Serious: Yes (Other)
  Sender: FDA-Public Use
  Company Number: CZ-AUROBINDO-AUR-APL-2022-050405

PATIENT
  Age: 68 Year
  Sex: Male

DRUGS (1)
  1. METFORMIN [Suspect]
     Active Substance: METFORMIN HYDROCHLORIDE
     Indication: Diabetes mellitus
     Dosage: 500 MILLIGRAM, ONCE A DAY
     Route: 065
     Dates: start: 202108

REACTIONS (9)
  - Hyperbilirubinaemia [Unknown]
  - Metastases to liver [Unknown]
  - Yellow skin [Unknown]
  - Chromaturia [Unknown]
  - Dyspepsia [Unknown]
  - Faeces pale [Unknown]
  - Early satiety [Unknown]
  - Weight decreased [Unknown]
  - Jaundice [Unknown]
